FAERS Safety Report 6876778-4 (Version None)
Quarter: 2010Q3

REPORT INFORMATION
  Report Type: 
  Country: None (occurrence: None)
  Receive Date: 20100727
  Receipt Date: 20100713
  Transmission Date: 20110219
  Serious: Yes (Other)
  Sender: FDA-Public Use
  Company Number: PHHY2010US45781

PATIENT
  Age: 33 Year
  Sex: Female

DRUGS (2)
  1. INTERFERON BETA-1B [Suspect]
     Indication: MULTIPLE SCLEROSIS
     Dosage: 8 MIU, QOD
     Route: 058
  2. STEROIDS NOS [Concomitant]
     Dosage: UNK

REACTIONS (5)
  - FOCAL SEGMENTAL GLOMERULOSCLEROSIS [None]
  - INFLAMMATION [None]
  - PROTEIN URINE PRESENT [None]
  - RENAL FAILURE ACUTE [None]
  - RENAL TUBULAR ATROPHY [None]
